FAERS Safety Report 5898864-8 (Version None)
Quarter: 2008Q3

REPORT INFORMATION
  Report Type: 
  Country: None (occurrence: None)
  Receive Date: 20080925
  Receipt Date: 20080919
  Transmission Date: 20090109
  Serious: Yes (Other)
  Sender: FDA-Public Use
  Company Number: JP-ROCHE-569934

PATIENT
  Sex: Male

DRUGS (8)
  1. ROCALTROL [Suspect]
     Indication: HYPERPARATHYROIDISM SECONDARY
     Dosage: ROUTE: INTRAVENOUS (NOS), DRUG REPORTED AS ROCALTROL INJECTION
     Route: 042
     Dates: start: 20080530, end: 20080530
  2. CINACALCET HYDROCHLORIDE [Concomitant]
     Dosage: DRUG: REGPARA
     Route: 048
  3. LASIX [Concomitant]
     Dosage: FORM: ORAL FORMULATION (NOT OTHERWISE SPECIFIED).
     Route: 048
     Dates: start: 20080517
  4. BLOPRESS [Concomitant]
     Route: 048
     Dates: start: 20080517
  5. ALOSENN [Concomitant]
     Route: 048
     Dates: start: 20080517
  6. CALTAN [Concomitant]
     Dosage: FORM: ORAL FORMULATION (NOT OTHERWISE SPECIFIED).
     Route: 048
     Dates: start: 20080517
  7. LANSOPRAZOLE [Concomitant]
     Route: 048
     Dates: start: 20080517
  8. HALCION [Concomitant]
     Route: 048
     Dates: start: 20080517

REACTIONS (1)
  - ANAPHYLACTIC REACTION [None]
